FAERS Safety Report 5736834-0 (Version None)
Quarter: 2008Q2

REPORT INFORMATION
  Report Type: 
  Country: None (occurrence: None)
  Receive Date: 20080508
  Receipt Date: 20080422
  Transmission Date: 20081010
  Serious: Yes (Disabling)
  Sender: FDA-Public Use
  Company Number: 8032146

PATIENT
  Age: 61 Year
  Sex: Female

DRUGS (1)
  1. PREDNISOLONE [Suspect]
     Indication: NEPHRITIS
     Dosage: 30 MG 2/D PO
     Route: 048

REACTIONS (1)
  - FEMORAL NECK FRACTURE [None]
